FAERS Safety Report 17201148 (Version 5)
Quarter: 2020Q1

REPORT INFORMATION
  Report Type: Report from Study
  Country: CA (occurrence: CA)
  Receive Date: 20191226
  Receipt Date: 20200225
  Transmission Date: 20200409
  Serious: Yes (Hospitalization, Other)
  Sender: FDA-Public Use
  Company Number: CA-GLAXOSMITHKLINE-CA2019AMR231862

PATIENT
  Sex: Female

DRUGS (1)
  1. MEPOLIZUMAB [Suspect]
     Active Substance: MEPOLIZUMAB
     Indication: ASTHMA
     Dosage: 100 MG, Z (MONTHLY)
     Route: 042
     Dates: start: 20190607

REACTIONS (7)
  - Intervertebral disc protrusion [Unknown]
  - Back pain [Unknown]
  - Pneumonia [Unknown]
  - Influenza [Unknown]
  - Sciatica [Unknown]
  - Sepsis [Unknown]
  - Pulmonary mycosis [Unknown]
